FAERS Safety Report 7212456-X (Version None)
Quarter: 2011Q1

REPORT INFORMATION
  Report Type: 
  Country: None (occurrence: None)
  Receive Date: 20110106
  Receipt Date: 20101231
  Transmission Date: 20110831
  Serious: Yes (Death)
  Sender: FDA-Public Use
  Company Number: US-PFIZER INC-2011000542

PATIENT
  Age: 45 Year
  Sex: Female

DRUGS (8)
  1. HYDROCHLOROTHIAZIDE [Suspect]
     Route: 048
  2. IRBESARTAN [Suspect]
     Route: 048
  3. AMLODIPINE BESYLATE [Suspect]
     Route: 048
  4. ZOLPIDEM TARTRATE [Suspect]
     Route: 048
  5. SITAGLIPTIN [Suspect]
     Route: 048
  6. FENOFIBRIC ACID [Suspect]
     Dosage: UNK
     Route: 048
  7. METFORMIN HCL [Suspect]
     Route: 048
  8. METOPROLOL [Suspect]
     Route: 048

REACTIONS (2)
  - COMPLETED SUICIDE [None]
  - INTENTIONAL DRUG MISUSE [None]
